FAERS Safety Report 8299057-X (Version None)
Quarter: 2012Q2

REPORT INFORMATION
  Report Type: 
  Country: None (occurrence: None)
  Receive Date: 20120419
  Receipt Date: 20120406
  Transmission Date: 20120825
  Serious: Yes (Disabling, Other)
  Sender: FDA-Public Use
  Company Number: IT-CELGENEUS-083-21880-12033385

PATIENT
  Age: 70 Year
  Sex: Female

DRUGS (3)
  1. FRAGMIN [Concomitant]
     Route: 058
  2. REVLIMID [Suspect]
     Route: 048
     Dates: start: 20101001
  3. REVLIMID [Suspect]
     Dosage: 5 MILLIGRAM
     Route: 048
     Dates: start: 20100706, end: 20120327

REACTIONS (2)
  - CONTRALATERAL BREAST CANCER [None]
  - BREAST CANCER RECURRENT [None]
